FAERS Safety Report 8262475-X (Version None)
Quarter: 2012Q1

REPORT INFORMATION
  Report Type: 
  Country: None (occurrence: None)
  Receive Date: 20120321
  Receipt Date: 20111007
  Transmission Date: 20120608
  Serious: Yes (Disabling)
  Sender: FDA-Public Use
  Company Number: 2011SP047719

PATIENT
  Sex: Male

DRUGS (1)
  1. PEGINTERFERON ALFA-2B [Suspect]
     Indication: MALIGNANT MELANOMA
     Dosage: ; SC

REACTIONS (3)
  - INJECTION SITE SWELLING [None]
  - FATIGUE [None]
  - INJECTION SITE ERYTHEMA [None]
